FAERS Safety Report 25137518 (Version 1)
Quarter: 2025Q1

REPORT INFORMATION
  Report Type: Spontaneous
  Country: CN (occurrence: CN)
  Receive Date: 20250329
  Receipt Date: 20250329
  Transmission Date: 20250408
  Serious: Yes (Other)
  Sender: ROCHE
  Company Number: CN-ROCHE-10000242257

PATIENT
  Age: 40 Year
  Sex: Female

DRUGS (6)
  1. BEVACIZUMAB [Suspect]
     Active Substance: BEVACIZUMAB
     Indication: Colorectal cancer metastatic
     Route: 065
     Dates: start: 202112, end: 202302
  2. BEVACIZUMAB [Suspect]
     Active Substance: BEVACIZUMAB
     Route: 065
     Dates: start: 2023, end: 2023
  3. IRINOTECAN [Suspect]
     Active Substance: IRINOTECAN
     Indication: Colorectal cancer metastatic
     Route: 065
     Dates: start: 2023, end: 2023
  4. IRINOTECAN [Suspect]
     Active Substance: IRINOTECAN
     Route: 065
     Dates: start: 202112, end: 202302
  5. RALTITREXED [Suspect]
     Active Substance: RALTITREXED
     Indication: Colorectal cancer metastatic
     Route: 065
     Dates: start: 2023, end: 2023
  6. RALTITREXED [Suspect]
     Active Substance: RALTITREXED
     Route: 065
     Dates: start: 202112, end: 202302

REACTIONS (2)
  - Disease progression [Recovered/Resolved]
  - Drug ineffective [Unknown]
